FAERS Safety Report 4742423-7 (Version None)
Quarter: 2005Q3

REPORT INFORMATION
  Report Type: 
  Country: None (occurrence: None)
  Receive Date: 20050808
  Receipt Date: 20050722
  Transmission Date: 20060218
  Serious: Yes (Other)
  Sender: FDA-Public Use
  Company Number: T05-USA-02601-01

PATIENT
  Age: 53 Year
  Sex: Female
  Weight: 63.05 kg

DRUGS (4)
  1. MEMANTINE HCL [Suspect]
     Indication: COGNITIVE DETERIORATION
     Dosage: 20 MG QD PO
     Route: 048
     Dates: start: 20050513, end: 20050701
  2. EFFEXOR [Concomitant]
  3. LEVOTHROID [Concomitant]
  4. CLIMARA [Concomitant]

REACTIONS (3)
  - ARTHRALGIA [None]
  - DYSPHORIA [None]
  - HALLUCINATION, AUDITORY [None]
